FAERS Safety Report 9529542 (Version 1)
Quarter: 2013Q3

REPORT INFORMATION
  Report Type: Report from Study
  Country: BR (occurrence: BR)
  Receive Date: 20130917
  Receipt Date: 20130917
  Transmission Date: 20140515
  Serious: Yes (Other)
  Sender: FDA-Public Use
  Company Number: PHHY2013BR103097

PATIENT
  Age: 12 Year
  Sex: Female

DRUGS (5)
  1. RITALINA [Suspect]
     Indication: ATTENTION DEFICIT/HYPERACTIVITY DISORDER
     Dosage: 1 DF, QD
  2. RITALINA [Suspect]
     Indication: MILD MENTAL RETARDATION
     Dosage: 1 DF, BID (1 TABLET IN THE MORNING AND 1IN THE AFTERNOON)
  3. RITALIN LA [Suspect]
     Indication: ATTENTION DEFICIT/HYPERACTIVITY DISORDER
     Dosage: 10 MG, QD (1 CAPSULE DAILY)
  4. RITALIN LA [Suspect]
     Indication: MILD MENTAL RETARDATION
     Dosage: 20 MG, QD (2 CAPSULES OF 10 MG DAILY)
  5. RITALIN LA [Suspect]
     Dosage: 20 MG, QD (1 CAPSULE DAILY)

REACTIONS (6)
  - Psychiatric symptom [Unknown]
  - Dyscalculia [Unknown]
  - Depression [Unknown]
  - Feeling abnormal [Unknown]
  - Impatience [Unknown]
  - Weight decreased [Unknown]
